FAERS Safety Report 9032376 (Version 1)
Quarter: 2013Q1

REPORT INFORMATION
  Report Type: Spontaneous
  Country: US (occurrence: None)
  Receive Date: 20130108
  Receipt Date: 20130108
  Transmission Date: 20140127
  Serious: Yes (Other)
  Sender: FDA-Public Use
  Company Number: AUR-APL-2012-05662

PATIENT
  Age: 46 Year
  Sex: Male

DRUGS (3)
  1. RIBAVIRIN (RIBAVIRIN) [Suspect]
     Indication: HEPATITIS C
     Dosage: 2 DOSES PER DAY.
     Route: 048
     Dates: start: 20120814
  2. PEGINTERFERON ALFA-2B (PEGINTERFERON ALFA-2B) [Suspect]
     Indication: HEPATITIS C
     Dosage: 1 DOSE PER WEEK - INJECTION.
     Route: 048
     Dates: start: 20120814
  3. INCIVO [Suspect]
     Indication: HEPATITIS C
     Dosage: 3 DOSES/TABLETS DAILY.
     Route: 048
     Dates: start: 20120814

REACTIONS (1)
  - Skin disorder [None]
